FAERS Safety Report 4579170-0 (Version None)
Quarter: 2005Q1

REPORT INFORMATION
  Report Type: 
  Country: None (occurrence: None)
  Receive Date: 20050208
  Receipt Date: 20050208
  Transmission Date: 20050727
  Serious: Yes (Life-Threatening)
  Sender: FDA-Public Use
  Company Number: None

PATIENT
  Age: 76 Year
  Sex: Female
  Weight: 68.0396 kg

DRUGS (11)
  1. LIPITOR [Suspect]
     Indication: CORONARY ARTERY DISEASE
     Dosage: 0NE DAY ORAL
     Route: 048
     Dates: start: 19960101, end: 20050127
  2. LIPITOR [Suspect]
     Indication: DIABETES MELLITUS
     Dosage: 0NE DAY ORAL
     Route: 048
     Dates: start: 19960101, end: 20050127
  3. LIPITOR [Suspect]
     Indication: HYPERCHOLESTEROLAEMIA
     Dosage: 0NE DAY ORAL
     Route: 048
     Dates: start: 19960101, end: 20050127
  4. LIPITOR [Suspect]
     Indication: HYPERTENSION
     Dosage: 0NE DAY ORAL
     Route: 048
     Dates: start: 19960101, end: 20050127
  5. EVISTA [Concomitant]
  6. ASPIRIN [Concomitant]
  7. PROTONIX [Concomitant]
  8. METROPROLOL [Concomitant]
  9. AMARYL [Concomitant]
  10. BENACAR [Concomitant]
  11. NPH INSULIN [Concomitant]

REACTIONS (4)
  - ASTHENIA [None]
  - DIFFICULTY IN WALKING [None]
  - LIVER FUNCTION TEST ABNORMAL [None]
  - RHABDOMYOLYSIS [None]
